FAERS Safety Report 21285259 (Version 1)
Quarter: 2022Q3

REPORT INFORMATION
  Report Type: Spontaneous
  Country: BE (occurrence: BE)
  Receive Date: 20220902
  Receipt Date: 20220902
  Transmission Date: 20221026
  Serious: Yes (Other)
  Sender: FDA-Public Use
  Company Number: BE-AUROBINDO-AUR-APL-2016-10174

PATIENT
  Age: 55 Year
  Sex: Male

DRUGS (10)
  1. CITALOPRAM [Interacting]
     Active Substance: CITALOPRAM HYDROBROMIDE
     Indication: Product used for unknown indication
     Dosage: UNK
     Route: 065
     Dates: start: 2012, end: 2012
  2. FENTANYL [Interacting]
     Active Substance: FENTANYL
     Indication: Thoracic vertebral fracture
     Dosage: UNK
     Route: 062
     Dates: start: 2012
  3. METHYLPREDNISOLONE [Interacting]
     Active Substance: METHYLPREDNISOLONE
     Indication: Immunosuppression
     Dosage: 4 MILLIGRAM, DAILY
     Route: 042
  4. METHYLPREDNISOLONE [Interacting]
     Active Substance: METHYLPREDNISOLONE
     Indication: Transplant rejection
     Dosage: 500 MILLIGRAM
     Route: 042
     Dates: start: 2012
  5. MYCOPHENOLATE MOFETIL [Suspect]
     Active Substance: MYCOPHENOLATE MOFETIL
     Indication: Immunosuppression
     Dosage: 500 MG, TWO TIMES A DAY
     Route: 065
  6. TACROLIMUS [Suspect]
     Active Substance: TACROLIMUS
     Indication: Immunosuppression
     Dosage: 0.5 MG, TWO TIMES A DAY
     Route: 065
  7. CIPROFLOXACIN [Concomitant]
     Active Substance: CIPROFLOXACIN
     Indication: Sinusitis bacterial
     Dosage: 1000 MILLIGRAM, ONCE A DAY
     Route: 048
     Dates: start: 2012
  8. SULFAMETHOXAZOLE AND TRIMETHOPRIM [Concomitant]
     Active Substance: SULFAMETHOXAZOLE\TRIMETHOPRIM
     Indication: Pseudomonas infection
     Dosage: UNK, ONCE A DAY
     Route: 048
  9. METFORMIN [Concomitant]
     Active Substance: METFORMIN HYDROCHLORIDE
     Indication: Glucose tolerance impaired
     Dosage: 1000 MILLIGRAM, ONCE A DAY
     Route: 048
     Dates: start: 2012
  10. ZOLEDRONIC ACID [Concomitant]
     Active Substance: ZOLEDRONIC ACID
     Indication: Thoracic vertebral fracture
     Dosage: UNK
     Route: 065
     Dates: start: 2012

REACTIONS (4)
  - Aspergillus infection [Unknown]
  - Hyponatraemia [Unknown]
  - Drug interaction [Unknown]
  - Stupor [Unknown]

NARRATIVE: CASE EVENT DATE: 20120101
